FAERS Safety Report 11940066 (Version 3)
Quarter: 2016Q2

REPORT INFORMATION
  Report Type: Spontaneous
  Country: US (occurrence: US)
  Receive Date: 20160122
  Receipt Date: 20160506
  Transmission Date: 20160815
  Serious: Yes (Life-Threatening, Hospitalization)
  Sender: FDA-Public Use
  Company Number: US-BAYER-2016-008946

PATIENT
  Age: 27 Year
  Sex: Female
  Weight: 48.98 kg

DRUGS (15)
  1. DIPRIVAN [Concomitant]
     Active Substance: PROPOFOL
  2. MOTRIN [Concomitant]
     Active Substance: IBUPROFEN
  3. AMBIEN [Concomitant]
     Active Substance: ZOLPIDEM TARTRATE
  4. ONDANSETRON [Concomitant]
     Active Substance: ONDANSETRON
     Indication: ANTIEMETIC SUPPORTIVE CARE
  5. LACTATED RINGERS [Concomitant]
     Active Substance: CALCIUM CHLORIDE\POTASSIUM CHLORIDE\SODIUM CHLORIDE\SODIUM LACTATE
  6. DEPO-PROVERA [Concomitant]
     Active Substance: MEDROXYPROGESTERONE ACETATE
     Dosage: UNK
  7. ZOFRAN [Concomitant]
     Active Substance: ONDANSETRON HYDROCHLORIDE
     Indication: NAUSEA
  8. ZEMURON [Concomitant]
     Active Substance: ROCURONIUM BROMIDE
  9. MIRENA [Suspect]
     Active Substance: LEVONORGESTREL
     Indication: CONTRACEPTION
     Dosage: 20 MCG/24HR, CONT
     Route: 015
     Dates: start: 20120814, end: 20140221
  10. PROVERA [Concomitant]
     Active Substance: MEDROXYPROGESTERONE ACETATE
  11. TORADOL [Concomitant]
     Active Substance: KETOROLAC TROMETHAMINE
  12. NORCO [Concomitant]
     Active Substance: ACETAMINOPHEN\HYDROCODONE BITARTRATE
  13. MEGESTROL [Concomitant]
     Active Substance: MEGESTROL
  14. DILAUDID [Concomitant]
     Active Substance: HYDROMORPHONE HYDROCHLORIDE
     Indication: ANALGESIC THERAPY
  15. MARCAINE [Concomitant]
     Active Substance: BUPIVACAINE HYDROCHLORIDE

REACTIONS (9)
  - Device issue [None]
  - Infection [None]
  - Pain [None]
  - Abdominal pain [None]
  - Uterine perforation [None]
  - Device dislocation [None]
  - Dyspareunia [None]
  - Menorrhagia [None]
  - Pelvic pain [None]

NARRATIVE: CASE EVENT DATE: 201310
